FAERS Safety Report 18213670 (Version 1)
Quarter: 2020Q3

REPORT INFORMATION
  Report Type: Spontaneous
  Country: IT (occurrence: IT)
  Receive Date: 20200831
  Receipt Date: 20200831
  Transmission Date: 20201103
  Serious: Yes (Hospitalization)
  Sender: FDA-Public Use
  Company Number: NVSC2020IT233976

PATIENT
  Age: 64 Year
  Sex: Female

DRUGS (1)
  1. ILARIS [Suspect]
     Active Substance: CANAKINUMAB
     Indication: CORONAVIRUS INFECTION
     Dosage: 300 MG, ONCE/SINGLE (TOTAL)
     Route: 058
     Dates: start: 20200407, end: 20200407

REACTIONS (2)
  - Bronchopulmonary aspergillosis [Recovered/Resolved with Sequelae]
  - Off label use [Recovered/Resolved with Sequelae]

NARRATIVE: CASE EVENT DATE: 20200425
